FAERS Safety Report 15119130 (Version 1)
Quarter: 2018Q3

REPORT INFORMATION
  Report Type: Spontaneous
  Country: US (occurrence: US)
  Receive Date: 20180709
  Receipt Date: 20180709
  Transmission Date: 20181010
  Serious: Yes (Hospitalization)
  Sender: FDA-Public Use
  Company Number: US-CHARTWELL PHARMA-2051553

PATIENT
  Age: 24 Year
  Sex: Male

DRUGS (6)
  1. FLUOXETINE [Suspect]
     Active Substance: FLUOXETINE HYDROCHLORIDE
  2. OLANZAPINE. [Suspect]
     Active Substance: OLANZAPINE
  3. BUPROPION. [Suspect]
     Active Substance: BUPROPION
  4. CYPROHEPTADINE. [Suspect]
     Active Substance: CYPROHEPTADINE
  5. RISPERIDONE. [Suspect]
     Active Substance: RISPERIDONE
     Indication: INTENTIONAL OVERDOSE
  6. TRAZODONE [Suspect]
     Active Substance: TRAZODONE HYDROCHLORIDE

REACTIONS (2)
  - Intentional overdose [Unknown]
  - Serotonin syndrome [Recovered/Resolved]
